FAERS Safety Report 20728081 (Version 2)
Quarter: 2022Q2

REPORT INFORMATION
  Report Type: Spontaneous
  Country: US (occurrence: US)
  Receive Date: 20220420
  Receipt Date: 20220518
  Transmission Date: 20220721
  Serious: No
  Sender: FDA-Public Use
  Company Number: US-NOVARTISTESTPH-NVSC2022US091246

PATIENT
  Age: 1 Year
  Sex: Female
  Weight: 9.56 kg

DRUGS (1)
  1. ZOLGENSMA [Suspect]
     Active Substance: ONASEMNOGENE ABEPARVOVEC-XIOI
     Indication: Spinal muscular atrophy
     Dosage: UNK
     Route: 042
     Dates: start: 202201

REACTIONS (3)
  - Erythema [Not Recovered/Not Resolved]
  - Pain [Not Recovered/Not Resolved]
  - Discomfort [Not Recovered/Not Resolved]

NARRATIVE: CASE EVENT DATE: 20220204
